FAERS Safety Report 9448455 (Version 1)
Quarter: 2013Q3

REPORT INFORMATION
  Report Type: Spontaneous
  Country: FR (occurrence: FR)
  Receive Date: 20130808
  Receipt Date: 20130808
  Transmission Date: 20140515
  Serious: Yes (Hospitalization)
  Sender: FDA-Public Use
  Company Number: FR-JNJFOC-20130802196

PATIENT
  Age: 90 Year
  Sex: Female

DRUGS (19)
  1. XARELTO [Suspect]
     Indication: THROMBOSIS PROPHYLAXIS
     Route: 048
     Dates: start: 20130713, end: 20130715
  2. MOTILIUM [Concomitant]
     Route: 048
  3. PARACETAMOL [Concomitant]
     Route: 048
  4. COVERSYL [Concomitant]
     Route: 048
  5. ESIDREX [Concomitant]
     Route: 048
  6. INEXIUM [Concomitant]
     Route: 048
  7. KARDEGIC [Concomitant]
     Route: 048
  8. LOVENOX [Concomitant]
     Indication: POST PROCEDURAL PULMONARY EMBOLISM
     Route: 058
  9. LOVENOX [Concomitant]
     Indication: POST PROCEDURAL PULMONARY EMBOLISM
     Route: 058
     Dates: start: 20130712, end: 20130712
  10. LOVENOX [Concomitant]
     Indication: POST PROCEDURAL PULMONARY EMBOLISM
     Route: 058
     Dates: start: 20130715
  11. LOVENOX [Concomitant]
     Indication: THROMBOSIS PROPHYLAXIS
     Route: 058
  12. LOVENOX [Concomitant]
     Indication: THROMBOSIS PROPHYLAXIS
     Route: 058
     Dates: start: 20130712, end: 20130712
  13. LOVENOX [Concomitant]
     Indication: THROMBOSIS PROPHYLAXIS
     Route: 058
     Dates: start: 20130715
  14. LOVENOX [Concomitant]
     Indication: THROMBOSIS PROPHYLAXIS
     Route: 058
     Dates: start: 20130715
  15. LOVENOX [Concomitant]
     Indication: THROMBOSIS PROPHYLAXIS
     Route: 058
     Dates: start: 20130712, end: 20130712
  16. LOVENOX [Concomitant]
     Indication: THROMBOSIS PROPHYLAXIS
     Route: 058
  17. CORDARONE [Concomitant]
     Indication: ATRIAL FIBRILLATION
     Route: 048
     Dates: start: 20130717
  18. SERETIDE [Concomitant]
     Route: 055
  19. CYMBALTA [Concomitant]
     Route: 048

REACTIONS (2)
  - Pulmonary embolism [Recovered/Resolved]
  - Drug ineffective [Recovered/Resolved]
